FAERS Safety Report 5170592-6 (Version None)
Quarter: 2006Q4

REPORT INFORMATION
  Report Type: 
  Country: None (occurrence: None)
  Receive Date: 20061205
  Receipt Date: 20061120
  Transmission Date: 20070319
  Serious: Yes (Other)
  Sender: FDA-Public Use
  Company Number: 2006146163

PATIENT
  Age: 40 Year
  Sex: Male

DRUGS (3)
  1. PREDNISOLONE [Suspect]
     Indication: CONDITION AGGRAVATED
     Dosage: (50 MG), ORAL
     Route: 048
  2. PREDNISOLONE [Suspect]
     Indication: ECZEMA
     Dosage: (50 MG), ORAL
     Route: 048
  3. PREDNISOLONE ACETATE [Concomitant]

REACTIONS (3)
  - ACUTE GENERALISED EXANTHEMATOUS PUSTULOSIS [None]
  - CONDITION AGGRAVATED [None]
  - ECZEMA [None]
